FAERS Safety Report 15546282 (Version 1)
Quarter: 2018Q4

REPORT INFORMATION
  Report Type: Spontaneous
  Country: US (occurrence: US)
  Receive Date: 20181023
  Receipt Date: 20181023
  Transmission Date: 20190205
  Serious: No
  Sender: FDA-Public Use
  Company Number: None

PATIENT
  Age: 44 Year
  Sex: Female
  Weight: 55.35 kg

DRUGS (8)
  1. IMODIUM [Concomitant]
     Active Substance: LOPERAMIDE HYDROCHLORIDE
  2. ZANTAC [Concomitant]
     Active Substance: RANITIDINE HYDROCHLORIDE
  3. NEURONTIN [Concomitant]
     Active Substance: GABAPENTIN
  4. AIMOVIG [Concomitant]
     Active Substance: ERENUMAB-AOOE
  5. XANAX [Concomitant]
     Active Substance: ALPRAZOLAM
  6. IBU [Concomitant]
     Active Substance: IBUPROFEN
  7. IMITREX [Concomitant]
     Active Substance: SUMATRIPTAN SUCCINATE
  8. COMBIPATCH (ESTRADIOL/NORETHINDRONE ACETATE TRANSDERMAL SYSTEM) [Suspect]
     Active Substance: ESTRADIOL\NORETHINDRONE ACETATE
     Indication: MENOPAUSAL SYMPTOMS
     Dosage: ?          OTHER STRENGTH:0.05/0.14;QUANTITY:8 PATCH(ES);OTHER FREQUENCY:TWICE A WEEK;?
     Route: 061
     Dates: start: 20181020, end: 20181022

REACTIONS (6)
  - Abdominal discomfort [None]
  - Rash papular [None]
  - Rash erythematous [None]
  - Nausea [None]
  - Pruritus [None]
  - Therapy cessation [None]

NARRATIVE: CASE EVENT DATE: 20181022
